FAERS Safety Report 8255445 (Version 2)
Quarter: 2013Q1

REPORT INFORMATION
  Report Type: Spontaneous
  Country: US (occurrence: US)
  Receive Date: 20111118
  Receipt Date: 20130304
  Transmission Date: 20140127
  Serious: Yes (Death, Hospitalization, Other)
  Sender: FDA-Public Use
  Company Number: US-ASTRAZENECA-2011SE37872

PATIENT
  Age: 91 Year
  Sex: Female

DRUGS (2)
  1. RHINOCORT AQUA [Suspect]
     Route: 045
  2. NEXIUM [Suspect]
     Route: 048

REACTIONS (9)
  - Death [Fatal]
  - Gastrointestinal haemorrhage [Unknown]
  - Cardiac failure congestive [Unknown]
  - Haemorrhage [Unknown]
  - Nephropathy [Unknown]
  - Cardiac valve disease [Unknown]
  - Atrial fibrillation [Unknown]
  - Malaise [Unknown]
  - Malaise [Unknown]
